FAERS Safety Report 4427884-5 (Version None)
Quarter: 2004Q3

REPORT INFORMATION
  Report Type: 
  Country: None (occurrence: None)
  Receive Date: 20040813
  Receipt Date: 20040805
  Transmission Date: 20050211
  Serious: Yes (Death)
  Sender: FDA-Public Use
  Company Number: US-JNJFOC-20040801653

PATIENT
  Sex: Male

DRUGS (1)
  1. SIMPLY SLEEP (DIPHENHYDRAMINE HYDROCHLORIDE) CAPLET [Suspect]
     Indication: SUICIDE ATTEMPT
     Dates: start: 20040803, end: 20040803

REACTIONS (2)
  - COMPLETED SUICIDE [None]
  - INTENTIONAL OVERDOSE [None]
